FAERS Safety Report 13046834 (Version 2)
Quarter: 2017Q1

REPORT INFORMATION
  Report Type: Spontaneous
  Country: US (occurrence: US)
  Receive Date: 20161220
  Receipt Date: 20170111
  Transmission Date: 20170428
  Serious: Yes (Other)
  Sender: FDA-Public Use
  Company Number: US-ELI_LILLY_AND_COMPANY-US201612004587

PATIENT
  Age: 65 Year
  Sex: Male

DRUGS (4)
  1. ZOLOFT [Concomitant]
     Active Substance: SERTRALINE HYDROCHLORIDE
     Dosage: UNK, UNKNOWN
     Route: 065
  2. CIALIS [Suspect]
     Active Substance: TADALAFIL
     Indication: ERECTILE DYSFUNCTION
     Dosage: 5 MG, QD
     Route: 065
     Dates: start: 20160409
  3. CIALIS [Suspect]
     Active Substance: TADALAFIL
     Dosage: 25 MG, PRN
     Route: 065
  4. CIALIS [Suspect]
     Active Substance: TADALAFIL
     Dosage: 15 MG, PRN

REACTIONS (8)
  - Inappropriate schedule of drug administration [Unknown]
  - Deafness [Not Recovered/Not Resolved]
  - Prescribed overdose [Unknown]
  - Tinnitus [Unknown]
  - Pollakiuria [Unknown]
  - Back pain [Recovered/Resolved]
  - Dizziness [Unknown]
  - Myalgia [Recovered/Resolved]

NARRATIVE: CASE EVENT DATE: 201611
